FAERS Safety Report 17944800 (Version 1)
Quarter: 2020Q2

REPORT INFORMATION
  Report Type: Spontaneous
  Country: PT (occurrence: PT)
  Receive Date: 20200626
  Receipt Date: 20200626
  Transmission Date: 20200714
  Serious: Yes (Hospitalization, Other)
  Sender: FDA-Public Use
  Company Number: PT-AUROBINDO-AUR-APL-2020-030183

PATIENT
  Age: 32 Year
  Sex: Male

DRUGS (9)
  1. QUETIAPINE. [Suspect]
     Active Substance: QUETIAPINE
     Indication: PRODUCT USED FOR UNKNOWN INDICATION
     Dosage: UNK
     Route: 065
  2. HALOPERIDOL. [Suspect]
     Active Substance: HALOPERIDOL
     Indication: AGGRESSION
     Dosage: 10 MILLIGRAM
     Route: 030
  3. HALOPERIDOL. [Suspect]
     Active Substance: HALOPERIDOL
     Dosage: 150 MILLIGRAM
     Route: 030
  4. HALOPERIDOL. [Suspect]
     Active Substance: HALOPERIDOL
     Dosage: 100 MILLIGRAM
     Route: 030
  5. LEVOMEPROMAZINE [Suspect]
     Active Substance: LEVOMEPROMAZINE
     Indication: PRODUCT USED FOR UNKNOWN INDICATION
     Dosage: 50 MILLIGRAM
     Route: 030
  6. OXAZEPAM. [Suspect]
     Active Substance: OXAZEPAM
     Indication: PRODUCT USED FOR UNKNOWN INDICATION
     Dosage: UNK
     Route: 065
  7. OLANZAPINE TABLET [Suspect]
     Active Substance: OLANZAPINE
     Indication: PRODUCT USED FOR UNKNOWN INDICATION
     Dosage: UNK
     Route: 065
  8. HALOPERIDOL. [Suspect]
     Active Substance: HALOPERIDOL
     Dosage: UNK
  9. HALOPERIDOL. [Suspect]
     Active Substance: HALOPERIDOL
     Indication: SLEEP DISORDER
     Dosage: 1 MILLIGRAM
     Route: 065

REACTIONS (24)
  - Abnormal behaviour [Recovering/Resolving]
  - Mutism [Unknown]
  - Psychomotor hyperactivity [Recovering/Resolving]
  - Abdominal distension [Recovered/Resolved]
  - Neuroleptic malignant syndrome [Recovered/Resolved]
  - Colitis ischaemic [Recovered/Resolved]
  - Transaminases increased [Recovering/Resolving]
  - Abdominal pain [Recovered/Resolved]
  - Tachypnoea [Recovering/Resolving]
  - Condition aggravated [Recovering/Resolving]
  - Muscle rigidity [Recovering/Resolving]
  - Diarrhoea haemorrhagic [Recovered/Resolved]
  - Hyperhidrosis [Recovering/Resolving]
  - Apathy [Recovering/Resolving]
  - Haematochezia [Recovering/Resolving]
  - Aggression [Recovering/Resolving]
  - Blood creatine phosphokinase increased [Recovering/Resolving]
  - Cognitive disorder [Recovering/Resolving]
  - Tremor [Recovering/Resolving]
  - Hypotension [Recovered/Resolved]
  - Tachycardia [Recovered/Resolved]
  - Dyskinesia [Recovering/Resolving]
  - Pyrexia [Recovering/Resolving]
  - Sleep disorder [Recovering/Resolving]
